FAERS Safety Report 7180642-3 (Version None)
Quarter: 2010Q4

REPORT INFORMATION
  Report Type: 
  Country: None (occurrence: None)
  Receive Date: 20101221
  Receipt Date: 20101214
  Transmission Date: 20110411
  Serious: Yes (Hospitalization)
  Sender: FDA-Public Use
  Company Number: US-US-EMD SERONO, INC.-7028506

PATIENT
  Sex: Female

DRUGS (3)
  1. REBIF [Suspect]
     Indication: MULTIPLE SCLEROSIS
     Dates: start: 20100707, end: 20101115
  2. UNSPECIFIED MEDICATION [Concomitant]
     Indication: DEPRESSION
  3. BLADDER PILL [Concomitant]
     Indication: BLADDER DISORDER
     Dates: end: 20101001

REACTIONS (7)
  - ADVERSE DRUG REACTION [None]
  - CONTUSION [None]
  - INTENTIONAL SELF-INJURY [None]
  - MULTIPLE SCLEROSIS RELAPSE [None]
  - PAIN IN EXTREMITY [None]
  - SCHIZOPHRENIA [None]
  - SUICIDAL BEHAVIOUR [None]
